FAERS Safety Report 16199247 (Version 1)
Quarter: 2019Q2

REPORT INFORMATION
  Report Type: Spontaneous
  Country: ZA (occurrence: ZA)
  Receive Date: 20190415
  Receipt Date: 20190415
  Transmission Date: 20190711
  Serious: Yes (Death, Hospitalization)
  Sender: FDA-Public Use
  Company Number: ZA-CELGENEUS-ZAF-20190403494

PATIENT
  Age: 77 Year
  Sex: Male
  Weight: 80 kg

DRUGS (3)
  1. ECOTRIN [Concomitant]
     Active Substance: ASPIRIN
     Indication: THROMBOCYTOPENIA
     Route: 065
     Dates: start: 2008, end: 20190225
  2. VIDAZA [Suspect]
     Active Substance: AZACITIDINE
     Indication: ACUTE MYELOID LEUKAEMIA
     Dosage: 150 MILLIGRAM
     Route: 058
     Dates: start: 20190313
  3. CARVETREND [Concomitant]
     Active Substance: CARVEDILOL
     Indication: HYPOTENSION
     Dosage: 5 MILLIGRAM
     Route: 065
     Dates: start: 2008, end: 20190225

REACTIONS (3)
  - Acute myeloid leukaemia [Fatal]
  - Septic shock [Fatal]
  - Pneumonia [Fatal]

NARRATIVE: CASE EVENT DATE: 20190324
